FAERS Safety Report 13692591 (Version 1)
Quarter: 2017Q2

REPORT INFORMATION
  Report Type: Spontaneous
  Country: US (occurrence: US)
  Receive Date: 20170627
  Receipt Date: 20170627
  Transmission Date: 20170830
  Serious: No
  Sender: FDA-Public Use
  Company Number: US-PFIZER INC-2017275443

PATIENT
  Age: 70 Year
  Sex: Male
  Weight: 81.63 kg

DRUGS (2)
  1. VIAGRA [Suspect]
     Active Substance: SILDENAFIL CITRATE
     Indication: ERECTILE DYSFUNCTION
     Dosage: 100 MG, ONCE
     Route: 048
     Dates: end: 20170620
  2. LOSARTAN AND HYDROCHLOROTHIAZIDE [Concomitant]
     Active Substance: HYDROCHLOROTHIAZIDE\LOSARTAN POTASSIUM
     Indication: BLOOD PRESSURE MEASUREMENT
     Dosage: UNK, 1X/DAY [HYDROCHLOROTHIAZIDE: 12.5 MG] / [LOSARTAN POTASSIUM: 100 MG]

REACTIONS (2)
  - Nasal congestion [Unknown]
  - Drug ineffective [Unknown]
